FAERS Safety Report 9165998 (Version 1)
Quarter: 2013Q1

REPORT INFORMATION
  Report Type: Spontaneous
  Country: GB (occurrence: None)
  Receive Date: 20130301
  Receipt Date: 20130301
  Transmission Date: 20140127
  Serious: Yes (Other)
  Sender: FDA-Public Use
  Company Number: AUR-APL-2013-01410

PATIENT
  Age: 52 Year
  Sex: Male

DRUGS (3)
  1. RIBAVIRIN (RIBAVIRIN) [Suspect]
     Indication: HEPATITIS C
     Dosage: (2 IN 1 D)
     Route: 048
     Dates: start: 20121024
  2. INCIVO  (TELAPREVIR) [Suspect]
     Indication: HEPATITIS C
     Dosage: (3 IN 1 D)
     Route: 048
     Dates: start: 20121024
  3. INTERFERON ALFA (INTERFERON ALFA) [Suspect]
     Indication: HEPATITIS C
     Dosage: (1 IN 1 WK)
     Dates: start: 20121024

REACTIONS (1)
  - Hepatitis [None]
